FAERS Safety Report 7276007-6 (Version None)
Quarter: 2011Q1

REPORT INFORMATION
  Report Type: 
  Country: None (occurrence: None)
  Receive Date: 20110204
  Receipt Date: 20110127
  Transmission Date: 20110831
  Serious: Yes (Other)
  Sender: FDA-Public Use
  Company Number: B0693928A

PATIENT
  Age: 82 Year
  Sex: Male

DRUGS (2)
  1. DUTASTERIDE/TAMSULIN HYDROCHLORIDE [Suspect]
     Route: 048
     Dates: start: 20101105, end: 20101101
  2. TAMSULOSIN HCL [Concomitant]
     Dosage: 4MG PER DAY

REACTIONS (3)
  - HAEMATURIA [None]
  - URINARY TRACT INFECTION [None]
  - DYSURIA [None]
